FAERS Safety Report 7280782-4 (Version None)
Quarter: 2011Q1

REPORT INFORMATION
  Report Type: 
  Country: None (occurrence: None)
  Receive Date: 20110208
  Receipt Date: 20110201
  Transmission Date: 20110831
  Serious: Yes (Life-Threatening, Hospitalization)
  Sender: FDA-Public Use
  Company Number: US-ASTRAZENECA-2009UW06790

PATIENT
  Age: 27864 Day
  Sex: Female
  Weight: 65.3 kg

DRUGS (15)
  1. FOLIC ACID [Concomitant]
  2. FENTANYL [Concomitant]
  3. TOPROL-XL [Concomitant]
     Route: 048
  4. METHOTREXATE [Concomitant]
  5. XANAX [Concomitant]
  6. EMBREL [Suspect]
     Route: 065
     Dates: start: 20090301
  7. NITROGLYCERIN [Concomitant]
  8. CLONAZEPAM [Concomitant]
     Indication: SLEEP DISORDER
  9. PROAIR HFA [Concomitant]
     Indication: CHRONIC OBSTRUCTIVE PULMONARY DISEASE
  10. NEXIUM [Suspect]
     Indication: GASTROOESOPHAGEAL REFLUX DISEASE
     Route: 048
     Dates: start: 20090307
  11. CARDIZEM [Concomitant]
  12. VITAMIN B-12 [Concomitant]
  13. SPIRIVA [Concomitant]
  14. PERCOCET [Concomitant]
  15. CYMBALTA [Concomitant]

REACTIONS (9)
  - FACE OEDEMA [None]
  - HYPERTENSION [None]
  - CEREBROVASCULAR ACCIDENT [None]
  - PALPITATIONS [None]
  - COMA [None]
  - FATIGUE [None]
  - ARTHRITIS [None]
  - OEDEMA PERIPHERAL [None]
  - INFLUENZA LIKE ILLNESS [None]
